FAERS Safety Report 11106633 (Version 3)
Quarter: 2015Q3

REPORT INFORMATION
  Report Type: Spontaneous
  Country: US (occurrence: US)
  Receive Date: 20150512
  Receipt Date: 20150812
  Transmission Date: 20151125
  Serious: No
  Sender: FDA-Public Use
  Company Number: US-PFIZER INC-2015148078

PATIENT
  Age: 60 Year
  Sex: Female
  Weight: 59 kg

DRUGS (9)
  1. EFFEXOR XR [Concomitant]
     Active Substance: VENLAFAXINE HYDROCHLORIDE
     Dosage: 75 MG, 1X/DAY
  2. CYTOMEL [Suspect]
     Active Substance: LIOTHYRONINE SODIUM
     Dosage: 25 ?G, UNK
  3. CYTOMEL [Suspect]
     Active Substance: LIOTHYRONINE SODIUM
     Dosage: 100 ?G, DAILY
  4. XANAX XR [Concomitant]
     Active Substance: ALPRAZOLAM
     Dosage: 1 MG, 1X/DAY
  5. XARELTO [Concomitant]
     Active Substance: RIVAROXABAN
     Dosage: 20 MG, DAILY (A DAY)
  6. LOVAZA [Concomitant]
     Active Substance: OMEGA-3-ACID ETHYL ESTERS
     Dosage: 4 G, 1X/DAY
  7. INDERAL [Concomitant]
     Active Substance: PROPRANOLOL HYDROCHLORIDE
     Dosage: 160 MG, DAILY (A DAY)
  8. CYTOMEL [Suspect]
     Active Substance: LIOTHYRONINE SODIUM
     Indication: SECONDARY HYPOTHYROIDISM
     Dosage: MAY BE 75 OR 100 MICROGRAM A DAY
     Dates: start: 2006
  9. ESTRADIOL. [Concomitant]
     Active Substance: ESTRADIOL
     Dosage: 2 MG, DAILY (A DAY)

REACTIONS (6)
  - Constipation [Unknown]
  - Product quality issue [Unknown]
  - Drug ineffective [Unknown]
  - Tri-iodothyronine decreased [Unknown]
  - Activities of daily living impaired [Unknown]
  - Haemorrhoids [Unknown]

NARRATIVE: CASE EVENT DATE: 20150225
